FAERS Safety Report 12975280 (Version 1)
Quarter: 2016Q4

REPORT INFORMATION
  Report Type: Report from Study
  Country: IE (occurrence: IE)
  Receive Date: 20161125
  Receipt Date: 20161125
  Transmission Date: 20170207
  Serious: Yes (Hospitalization)
  Sender: FDA-Public Use
  Company Number: US-ASTRAZENECA-2016SF23482

PATIENT
  Age: 7 Month
  Sex: Female

DRUGS (1)
  1. SYNAGIS [Suspect]
     Active Substance: PALIVIZUMAB
     Indication: HEART DISEASE CONGENITAL
     Dosage: 15.0MG/KG UNKNOWN
     Route: 030
     Dates: start: 20161019

REACTIONS (3)
  - Ear infection viral [Recovering/Resolving]
  - Viral infection [Recovering/Resolving]
  - Pharyngitis [Recovering/Resolving]
